FAERS Safety Report 5146439-0 (Version None)
Quarter: 2006Q4

REPORT INFORMATION
  Report Type: 
  Country: None (occurrence: None)
  Receive Date: 20061102
  Receipt Date: 20061020
  Transmission Date: 20070319
  Serious: Yes (Hospitalization)
  Sender: FDA-Public Use
  Company Number: 2006047378

PATIENT
  Age: 58 Year
  Sex: Male
  Weight: 86.9 kg

DRUGS (8)
  1. SUTENT [Suspect]
     Indication: RENAL CELL CARCINOMA STAGE UNSPECIFIED
     Dosage: 50 MG (50 MG, DAILY FOR 28 DAYS), ORAL
     Route: 048
     Dates: start: 20051208, end: 20060330
  2. TOPROL-XL [Concomitant]
  3. CALCIUM (CALCIUM) [Concomitant]
  4. CHONDROITIN/GLUCOSAMINE (CHONDROITIN, GLUCOSAMINE) [Concomitant]
  5. MULTIVITAMIN [Concomitant]
  6. LOVASTATIN [Concomitant]
  7. CLEBREXX (CELECOXIB) [Concomitant]
  8. ZOMETA [Concomitant]

REACTIONS (4)
  - DISEASE PROGRESSION [None]
  - DYSPNOEA [None]
  - METASTASES TO PLEURA [None]
  - PLEURAL EFFUSION [None]
